FAERS Safety Report 5118589-6 (Version None)
Quarter: 2006Q4

REPORT INFORMATION
  Report Type: 
  Country: None (occurrence: None)
  Receive Date: 20061002
  Receipt Date: 20060922
  Transmission Date: 20070319
  Serious: Yes (Death)
  Sender: FDA-Public Use
  Company Number: PHHO2006BR15994

PATIENT
  Age: 59 Year
  Sex: Female

DRUGS (1)
  1. ZELMAC [Suspect]
     Route: 048

REACTIONS (3)
  - GASTROINTESTINAL HAEMORRHAGE [None]
  - ISCHAEMIA [None]
  - THROMBOSIS [None]
